FAERS Safety Report 4435587-6 (Version None)
Quarter: 2004Q3

REPORT INFORMATION
  Report Type: 
  Country: None (occurrence: None)
  Receive Date: 20040726
  Receipt Date: 20040510
  Transmission Date: 20050211
  Serious: No
  Sender: FDA-Public Use
  Company Number: USA040567129

PATIENT
  Age: 19 Year
  Sex: Female

DRUGS (6)
  1. FORTEO [Suspect]
     Indication: OSTEOPOROSIS
     Dosage: UNK
  2. LAMICTAL [Concomitant]
  3. VIACTIV [Concomitant]
  4. PREVACID [Concomitant]
  5. VALIUM [Concomitant]
  6. SELENIUM TRACE METAL ADDITIVE [Concomitant]

REACTIONS (1)
  - HYPERCALCAEMIA [None]
